FAERS Safety Report 6879042-2 (Version None)
Quarter: 2010Q3

REPORT INFORMATION
  Report Type: 
  Country: None (occurrence: None)
  Receive Date: 20100728
  Receipt Date: 20100713
  Transmission Date: 20110219
  Serious: Yes (Other)
  Sender: FDA-Public Use
  Company Number: PHHY2010US32757

PATIENT
  Sex: Male

DRUGS (16)
  1. ZOMETA [Suspect]
     Indication: PROSTATE CANCER METASTATIC
     Dosage: 4 MG EVERY 4 WEEKS
     Route: 042
     Dates: start: 20090601, end: 20100510
  2. JANUVIA [Concomitant]
     Dosage: 100 MG, Q24H
  3. SIMVASTATIN [Concomitant]
     Dosage: 40 MG/DAY
  4. GLYBURIDE [Concomitant]
     Dosage: 5 MG/DAY
  5. BENAZEPRIL HYDROCHLORIDE [Concomitant]
     Dosage: 20 MG/DAY
  6. ALLEGRA D 24 HOUR [Concomitant]
  7. COQ10 [Concomitant]
  8. VITAMIN B-12 [Concomitant]
     Indication: VITAMIN B12 DEFICIENCY
  9. VITAMIN D3 [Concomitant]
  10. FINASTERIDE [Concomitant]
  11. HYDROCORTISONE [Concomitant]
  12. HYDROCHLOROTHIAZIDE [Concomitant]
  13. CASODEX [Concomitant]
     Dosage: 100 MG, UNK
  14. CASODEX [Concomitant]
     Dosage: 100 MG/DAY
  15. HYDROCODONE BITARTRATE [Concomitant]
  16. LUPRON [Concomitant]
     Dosage: EVERY 4 MONTHS

REACTIONS (15)
  - ANAEMIA VITAMIN B12 DEFICIENCY [None]
  - BONE DENSITY DECREASED [None]
  - CELLULITIS [None]
  - DISCOMFORT [None]
  - EDENTULOUS [None]
  - FACIAL PAIN [None]
  - MALOCCLUSION [None]
  - MUSCULOSKELETAL DISORDER [None]
  - NEPHROGENIC ANAEMIA [None]
  - OSTEONECROSIS OF JAW [None]
  - PAIN IN JAW [None]
  - PERIODONTAL DISEASE [None]
  - RENAL IMPAIRMENT [None]
  - SOFT TISSUE INFLAMMATION [None]
  - TOOTH EXTRACTION [None]
